FAERS Safety Report 24457734 (Version 1)
Quarter: 2024Q4

REPORT INFORMATION
  Report Type: Spontaneous
  Country: CN (occurrence: CN)
  Receive Date: 20241018
  Receipt Date: 20241018
  Transmission Date: 20250114
  Serious: No
  Sender: ROCHE
  Company Number: CN-BoehringerIngelheim-2023-BI-261462

PATIENT
  Age: 72 Year
  Sex: Male
  Weight: 58.0 kg

DRUGS (2)
  1. ALTEPLASE [Suspect]
     Active Substance: ALTEPLASE
     Indication: Cerebral infarction
     Route: 040
     Dates: start: 20230912, end: 20230912
  2. ALTEPLASE [Suspect]
     Active Substance: ALTEPLASE
     Route: 041
     Dates: start: 20230912, end: 20230912

REACTIONS (2)
  - Mucosal haemorrhage [Recovered/Resolved]
  - Gingival bleeding [Recovered/Resolved]

NARRATIVE: CASE EVENT DATE: 20230912
